FAERS Safety Report 4391925-4 (Version None)
Quarter: 2004Q3

REPORT INFORMATION
  Report Type: 
  Country: None (occurrence: None)
  Receive Date: 20040701
  Receipt Date: 20040625
  Transmission Date: 20050211
  Serious: Yes (Hospitalization)
  Sender: FDA-Public Use
  Company Number: STA-AE-04-MTX-277

PATIENT
  Age: 49 Year
  Sex: Female

DRUGS (13)
  1. METHOTREXATE [Suspect]
     Indication: RHEUMATOID ARTHRITIS
     Dosage: 20 MG 1X PER 1 WK, ORAL
     Route: 048
     Dates: start: 19971001, end: 20040101
  2. METHOTREXATE [Suspect]
     Indication: RHEUMATOID ARTHRITIS
     Dosage: 20 MG 1X PER 1 WK, ORAL
     Route: 048
     Dates: start: 20040308
  3. REMICADE (INFLIXIMAB) [Suspect]
     Indication: RHEUMATOID ARTHRITIS
     Dosage: 800 MG 1X PER 8 WK, INTRAVENOUS
     Route: 042
     Dates: start: 20020601, end: 20040101
  4. REMICADE (INFLIXIMAB) [Suspect]
     Indication: RHEUMATOID ARTHRITIS
     Dosage: 800 MG 1X PER 8 WK, INTRAVENOUS
     Route: 042
     Dates: start: 20040525
  5. PLAQUENIL [Concomitant]
  6. CELEBREX [Concomitant]
  7. ALTACE [Concomitant]
  8. GLUCOTROL [Concomitant]
  9. ACTOS [Concomitant]
  10. PRILOSEC [Concomitant]
  11. ASPIRIN [Concomitant]
  12. ALLEGRA-D (FEXOFENADINE HYDROCHLORIDE/PSEUDOEPHEDRINE HYDROCHLORDIE) [Concomitant]
  13. NASACORT [Concomitant]

REACTIONS (3)
  - ABDOMINAL ADHESIONS [None]
  - ABDOMINAL STRANGULATED HERNIA [None]
  - SMALL INTESTINAL OBSTRUCTION [None]
